FAERS Safety Report 11037506 (Version 2)
Quarter: 2015Q2

REPORT INFORMATION
  Report Type: Report from Study
  Country: ES (occurrence: ES)
  Receive Date: 20150416
  Receipt Date: 20150423
  Transmission Date: 20150821
  Serious: Yes (Death, Other)
  Sender: FDA-Public Use
  Company Number: ES-AMGEN-ESPSL2015036387

PATIENT
  Age: 88 Year
  Sex: Female
  Weight: 68 kg

DRUGS (1)
  1. ARANESP [Suspect]
     Active Substance: DARBEPOETIN ALFA
     Indication: RENAL FAILURE
     Dosage: 20 MUG, Q4WK
     Route: 058
     Dates: start: 20131217, end: 20150318

REACTIONS (2)
  - Nephroangiosclerosis [Unknown]
  - Disease progression [Fatal]

NARRATIVE: CASE EVENT DATE: 201411
